FAERS Safety Report 23768746 (Version 1)
Quarter: 2024Q2

REPORT INFORMATION
  Report Type: Spontaneous
  Country: US (occurrence: None)
  Receive Date: 20240420
  Receipt Date: 20240420
  Transmission Date: 20240716
  Serious: No
  Sender: FDA-Public Use
  Company Number: None

PATIENT
  Age: 62 Year
  Sex: Female

DRUGS (1)
  1. KISQALI [Suspect]
     Active Substance: RIBOCICLIB
     Indication: Breast cancer female
     Dosage: FREQUENCY : DAILY;?

REACTIONS (9)
  - Visual impairment [None]
  - Photopsia [None]
  - Fatigue [None]
  - Nervousness [None]
  - Metastases to lung [None]
  - Metastases to pleura [None]
  - Palpitations [None]
  - Blood pressure increased [None]
  - Pulmonary oedema [None]
